FAERS Safety Report 24751464 (Version 1)
Quarter: 2024Q4

REPORT INFORMATION
  Report Type: Report from Study
  Country: US (occurrence: US)
  Receive Date: 20241219
  Receipt Date: 20241219
  Transmission Date: 20250115
  Serious: Yes (Other)
  Sender: ABBVIE
  Company Number: US-ABBVIE-6049670

PATIENT
  Age: 66 Year
  Sex: Male

DRUGS (2)
  1. RINVOQ [Suspect]
     Active Substance: UPADACITINIB
     Indication: Rheumatoid arthritis
     Route: 048
     Dates: start: 20200422
  2. covid shot [Concomitant]
     Indication: COVID-19 immunisation

REACTIONS (7)
  - Occipital neuralgia [Unknown]
  - Night sweats [Recovered/Resolved]
  - Pyrexia [Recovered/Resolved]
  - Oral pain [Recovering/Resolving]
  - Lyme disease [Unknown]
  - Tinnitus [Unknown]
  - Taste disorder [Unknown]

NARRATIVE: CASE EVENT DATE: 20241208
